FAERS Safety Report 16354682 (Version 1)
Quarter: 2019Q2

REPORT INFORMATION
  Report Type: Spontaneous
  Country: US (occurrence: US)
  Receive Date: 20190524
  Receipt Date: 20190524
  Transmission Date: 20190711
  Serious: Yes (Hospitalization, Other)
  Sender: FDA-Public Use
  Company Number: US-GLAXOSMITHKLINE-US2019GSK093504

PATIENT
  Age: 80 Year
  Sex: Male

DRUGS (6)
  1. RIFAMPIN. [Interacting]
     Active Substance: RIFAMPIN
     Indication: MYCOBACTERIUM AVIUM COMPLEX INFECTION
     Dosage: UNK
  2. FLUTICASONE PROPIONATE+SALMETEROL XINAFOATE [Suspect]
     Active Substance: FLUTICASONE PROPIONATE\SALMETEROL XINAFOATE
     Indication: PRODUCTIVE COUGH
  3. FLUCONAZOLE. [Interacting]
     Active Substance: FLUCONAZOLE
     Indication: DYSPNOEA
     Dosage: 400 MG, QD
  4. FLUCONAZOLE. [Interacting]
     Active Substance: FLUCONAZOLE
     Indication: PRODUCTIVE COUGH
  5. FLUTICASONE PROPIONATE+SALMETEROL XINAFOATE [Suspect]
     Active Substance: FLUTICASONE PROPIONATE\SALMETEROL XINAFOATE
     Indication: DYSPNOEA
     Dosage: 1 PUFF(S), BID
     Route: 055
  6. PREDNISONE. [Concomitant]
     Active Substance: PREDNISONE
     Indication: CHRONIC OBSTRUCTIVE PULMONARY DISEASE
     Dosage: UNK
     Route: 048

REACTIONS (18)
  - Sensation of foreign body [Recovered/Resolved]
  - Mycobacterium avium complex infection [Recovered/Resolved]
  - Crepitations [Recovered/Resolved]
  - Laryngeal oedema [Recovered/Resolved]
  - Epiglottis ulcer [Recovered/Resolved]
  - Inflammation [Recovered/Resolved]
  - Bronchiectasis [Recovered/Resolved]
  - Excessive granulation tissue [Recovered/Resolved]
  - Tracheal stenosis [Recovering/Resolving]
  - Purulent discharge [Recovered/Resolved]
  - Tracheal erythema [Recovered/Resolved]
  - Fibrosis [Recovered/Resolved]
  - Drug interaction [Unknown]
  - Mucosal ulceration [Recovered/Resolved]
  - Skin mass [Recovered/Resolved]
  - Cryptococcosis [Recovered/Resolved]
  - Wheezing [Recovered/Resolved]
  - Dysphonia [Recovered/Resolved]
